FAERS Safety Report 7509131-0 (Version None)
Quarter: 2011Q2

REPORT INFORMATION
  Report Type: 
  Country: None (occurrence: None)
  Receive Date: 20110527
  Receipt Date: 20110517
  Transmission Date: 20111010
  Serious: Yes (Other)
  Sender: FDA-Public Use
  Company Number: AU-JNJFOC-20110305744

PATIENT
  Sex: Male

DRUGS (4)
  1. STELARA [Suspect]
     Indication: PRODUCT USED FOR UNKNOWN INDICATION
     Route: 058
     Dates: start: 20101107
  2. STELARA [Suspect]
     Route: 058
     Dates: start: 20100416
  3. STELARA [Suspect]
     Route: 058
     Dates: start: 20110224
  4. WARFARIN SODIUM [Concomitant]

REACTIONS (1)
  - HERPES ZOSTER [None]
